FAERS Safety Report 19563895 (Version 2)
Quarter: 2021Q3

REPORT INFORMATION
  Report Type: Spontaneous
  Country: US (occurrence: US)
  Receive Date: 20210716
  Receipt Date: 20210723
  Transmission Date: 20211014
  Serious: Yes (Other)
  Sender: FDA-Public Use
  Company Number: US-ASTRAZENECA-2021A617303

PATIENT
  Age: 60 Year
  Sex: Female
  Weight: 63.5 kg

DRUGS (7)
  1. PRILOSEC [Suspect]
     Active Substance: OMEPRAZOLE MAGNESIUM
     Dosage: UNKNOWN
     Route: 048
  2. KLONOPIN [Concomitant]
     Active Substance: CLONAZEPAM
  3. UNSPECIFIED INSULIN [Concomitant]
     Active Substance: INSULIN NOS
  4. NURISH BY NATUREMADE [DIETARY SUPPLEMENT] [Suspect]
     Active Substance: DIETARY SUPPLEMENT
     Indication: VITAMIN B12 DEFICIENCY
     Route: 048
     Dates: start: 2021, end: 202105
  5. LIPITOR [Suspect]
     Active Substance: ATORVASTATIN CALCIUM
     Route: 065
     Dates: end: 202105
  6. JARDIANCE [Suspect]
     Active Substance: EMPAGLIFLOZIN
     Route: 065
     Dates: end: 202105
  7. FLOCONAZOLE [Suspect]
     Active Substance: FLUCONAZOLE
     Route: 065
     Dates: end: 202105

REACTIONS (9)
  - Blood glucose abnormal [Unknown]
  - Hepatic enzyme increased [Unknown]
  - Muscle strain [Unknown]
  - Diarrhoea [Not Recovered/Not Resolved]
  - Abdominal pain lower [Not Recovered/Not Resolved]
  - Abdominal discomfort [Unknown]
  - Liver injury [Not Recovered/Not Resolved]
  - Musculoskeletal chest pain [Unknown]
  - Weight decreased [Not Recovered/Not Resolved]

NARRATIVE: CASE EVENT DATE: 202105
